FAERS Safety Report 14658787 (Version 2)
Quarter: 2018Q2

REPORT INFORMATION
  Report Type: Spontaneous
  Country: AT (occurrence: AT)
  Receive Date: 20180320
  Receipt Date: 20180426
  Transmission Date: 20180711
  Serious: Yes (Life-Threatening, Hospitalization, Disabling)
  Sender: FDA-Public Use
  Company Number: AT-CELGENEUS-AUT-20180301768

PATIENT
  Age: 62 Year
  Sex: Male
  Weight: 80 kg

DRUGS (8)
  1. OTEZLA [Suspect]
     Active Substance: APREMILAST
     Dosage: 60 MILLIGRAM
     Route: 048
     Dates: start: 201608, end: 201609
  2. OTEZLA [Suspect]
     Active Substance: APREMILAST
     Dosage: 25 MILLIGRAM
     Route: 048
     Dates: start: 201609, end: 201706
  3. ENBREL [Concomitant]
     Active Substance: ETANERCEPT
     Indication: PSORIATIC ARTHROPATHY
     Dosage: 3.5714 MILLIGRAM
     Route: 065
     Dates: start: 200410, end: 201606
  4. OTEZLA [Suspect]
     Active Substance: APREMILAST
     Indication: PSORIATIC ARTHROPATHY
     Dosage: 25 MILLIGRAM
     Route: 048
     Dates: start: 201604, end: 201606
  5. APREDNISOLON [Concomitant]
     Active Substance: PREDNISOLONE
     Indication: PRODUCT USED FOR UNKNOWN INDICATION
     Route: 065
  6. ENBREL [Concomitant]
     Active Substance: ETANERCEPT
     Dosage: 3.5714 MILLIGRAM
     Route: 065
     Dates: start: 201609, end: 201706
  7. PANTOPRAZOL [Concomitant]
     Active Substance: PANTOPRAZOLE SODIUM
     Indication: PRODUCT USED FOR UNKNOWN INDICATION
     Route: 065
  8. NIFTEN [Concomitant]
     Indication: PRODUCT USED FOR UNKNOWN INDICATION
     Route: 065

REACTIONS (2)
  - Clear cell renal cell carcinoma [Recovered/Resolved with Sequelae]
  - Clear cell renal cell carcinoma [Recovered/Resolved with Sequelae]

NARRATIVE: CASE EVENT DATE: 20170619
